FAERS Safety Report 9601763 (Version 1)
Quarter: 2013Q4

REPORT INFORMATION
  Report Type: Spontaneous
  Country: US (occurrence: None)
  Receive Date: 20131004
  Receipt Date: 20131004
  Transmission Date: 20140711
  Serious: Yes (Life-Threatening)
  Sender: FDA-Public Use
  Company Number: None

PATIENT
  Age: 56 Year
  Sex: Female
  Weight: 73.03 kg

DRUGS (1)
  1. NUVIGIL [Suspect]
     Indication: FATIGUE
     Dosage: 1PILL; ONCE DAILY
     Dates: start: 20130916, end: 20130922

REACTIONS (8)
  - Rash [None]
  - Skin exfoliation [None]
  - Skin disorder [None]
  - Dry skin [None]
  - Vomiting [None]
  - Dysphagia [None]
  - Burning sensation [None]
  - Dehydration [None]
